FAERS Safety Report 5787249-0 (Version None)
Quarter: 2008Q2

REPORT INFORMATION
  Report Type: 
  Country: None (occurrence: None)
  Receive Date: 20080625
  Receipt Date: 20070824
  Transmission Date: 20081010
  Serious: No
  Sender: FDA-Public Use
  Company Number: US-ASTRAZENECA-2007UW20102

PATIENT
  Age: 59 Year
  Sex: Female
  Weight: 58.5 kg

DRUGS (2)
  1. PULMICORT FLEXHALER [Suspect]
     Route: 055
  2. ALBUTEROL [Concomitant]

REACTIONS (2)
  - COUGH [None]
  - RESPIRATORY TRACT IRRITATION [None]
